FAERS Safety Report 8470676-0 (Version None)
Quarter: 2012Q2

REPORT INFORMATION
  Report Type: 
  Country: None (occurrence: None)
  Receive Date: 20120627
  Receipt Date: 20120622
  Transmission Date: 20120825
  Serious: Yes (Hospitalization, Other)
  Sender: FDA-Public Use
  Company Number: US-PFIZER INC-2012151078

PATIENT
  Sex: Male
  Weight: 68.027 kg

DRUGS (2)
  1. TRAMADOL [Concomitant]
     Indication: PAIN
     Dosage: UNK
     Dates: end: 20120429
  2. CELEBREX [Suspect]
     Indication: OSTEONECROSIS
     Dosage: 200 MG, 2X/DAY
     Dates: start: 20110501, end: 20120620

REACTIONS (3)
  - HIP FRACTURE [None]
  - OTOTOXICITY [None]
  - HIP ARTHROPLASTY [None]
